FAERS Safety Report 7516124-6 (Version None)
Quarter: 2011Q2

REPORT INFORMATION
  Report Type: 
  Country: None (occurrence: None)
  Receive Date: 20110601
  Receipt Date: 20110523
  Transmission Date: 20111010
  Serious: Yes (Other)
  Sender: FDA-Public Use
  Company Number: US-ROCHE-778811

PATIENT
  Sex: Female

DRUGS (1)
  1. ACCUTANE [Suspect]
     Route: 065
     Dates: start: 19900101, end: 19920101

REACTIONS (4)
  - INJURY [None]
  - EYE INJURY [None]
  - CEREBROVASCULAR ACCIDENT [None]
  - COLITIS ULCERATIVE [None]
